FAERS Safety Report 7451750-4 (Version None)
Quarter: 2011Q2

REPORT INFORMATION
  Report Type: 
  Country: None (occurrence: None)
  Receive Date: 20110502
  Receipt Date: 20110418
  Transmission Date: 20111010
  Serious: Yes (Other)
  Sender: FDA-Public Use
  Company Number: PHHY2010CA01237

PATIENT
  Sex: Female

DRUGS (5)
  1. GEMCITABINE [Concomitant]
  2. ZOMETA [Suspect]
     Indication: BREAST CANCER METASTATIC
     Dosage: 4 MG EVERY 4 WEEKS
     Dates: start: 20071127, end: 20100806
  3. CHEMOTHERAPEUTICS NOS [Concomitant]
     Dosage: UNK
     Dates: start: 20100701, end: 20101201
  4. ZOMETA [Suspect]
     Dosage: 4 MG EVERY 4 WEEKS
     Dates: start: 20090331
  5. PACLITAXEL [Concomitant]

REACTIONS (6)
  - NEOPLASM MALIGNANT [None]
  - METASTASES TO KIDNEY [None]
  - METASTASES TO OVARY [None]
  - BACK PAIN [None]
  - TOOTH ABSCESS [None]
  - OSTEONECROSIS OF JAW [None]
